FAERS Safety Report 8125739-6 (Version None)
Quarter: 2012Q1

REPORT INFORMATION
  Report Type: 
  Country: None (occurrence: None)
  Receive Date: 20120209
  Receipt Date: 20120206
  Transmission Date: 20120608
  Serious: No
  Sender: FDA-Public Use
  Company Number: US-PFIZER INC-2012015231

PATIENT
  Sex: Female
  Weight: 61.224 kg

DRUGS (3)
  1. XANAX [Suspect]
     Indication: ANXIETY
  2. XANAX [Suspect]
     Indication: SLEEP DISORDER
     Dosage: 0.5MG IN MORNING, 0.5MG IN AFTERNOON AND 1MG AT NIGHT
     Route: 048
  3. ZOLOFT [Suspect]
     Indication: DEPRESSION
     Dosage: 150 MG, DAILY
     Route: 048

REACTIONS (1)
  - FIBROMYALGIA [None]
